FAERS Safety Report 4325430-8 (Version None)
Quarter: 2004Q1

REPORT INFORMATION
  Report Type: 
  Country: None (occurrence: None)
  Receive Date: 20040324
  Receipt Date: 20040308
  Transmission Date: 20041129
  Serious: Yes (Other)
  Sender: FDA-Public Use
  Company Number: A0501764A

PATIENT
  Age: 71 Year
  Sex: Female

DRUGS (8)
  1. NICODERM CQ [Suspect]
     Indication: EX-SMOKER
     Dosage: 21 MG/TRANSDERMAL
     Route: 062
     Dates: start: 20030501, end: 20030501
  2. CARVEDILOL [Concomitant]
  3. POTASSIUM CHLORIDE [Concomitant]
  4. OXYBUTYNIN HYDROCHLORIDE [Concomitant]
  5. WARFARIN SODIUM [Concomitant]
  6. RAMIPRIL [Concomitant]
  7. ZOLPIDEM TARTRATE [Concomitant]
  8. FRUSEMIDE [Concomitant]

REACTIONS (2)
  - LOSS OF CONSCIOUSNESS [None]
  - TREATMENT NONCOMPLIANCE [None]
